FAERS Safety Report 8066795-3 (Version None)
Quarter: 2012Q1

REPORT INFORMATION
  Report Type: 
  Country: None (occurrence: None)
  Receive Date: 20120124
  Receipt Date: 20120123
  Transmission Date: 20120608
  Serious: Yes (Death)
  Sender: FDA-Public Use
  Company Number: US-ROCHE-1027872

PATIENT
  Sex: Female

DRUGS (4)
  1. HERCEPTIN [Suspect]
     Indication: BREAST CANCER METASTATIC
     Route: 042
     Dates: start: 20070102
  2. ZOMETA [Concomitant]
     Indication: BREAST CANCER METASTATIC
  3. AVASTIN [Concomitant]
     Indication: BREAST CANCER METASTATIC
     Dates: start: 20091015
  4. GEMZAR [Concomitant]
     Dates: start: 20091015

REACTIONS (1)
  - DEATH [None]
